FAERS Safety Report 20475078 (Version 1)
Quarter: 2022Q1

REPORT INFORMATION
  Report Type: Spontaneous
  Country: US (occurrence: None)
  Receive Date: 20220214
  Receipt Date: 20220214
  Transmission Date: 20220423
  Serious: Yes (Hospitalization)
  Sender: FDA-Public Use
  Company Number: None

PATIENT
  Age: 70 Year
  Sex: Male

DRUGS (14)
  1. SOTROVIMAB [Suspect]
     Active Substance: SOTROVIMAB
     Indication: COVID-19
     Dosage: OTHER FREQUENCY : ONCE;?
     Route: 042
  2. acetaminophen (TYLENOL) 325 mg tablet [Concomitant]
  3. albuterol HFA (Ventolin HFA) 90 mcg/actuation inhaler [Concomitant]
  4. amoxicillin-pot clavulanate (Augmentin) 875-125 mg per tablet [Concomitant]
  5. aspirin 81 mg chewable tablet [Concomitant]
  6. cholecalciferol (VITAMIN D3) 50 mcg (2,000 unit) capsule [Concomitant]
  7. coenzyme Q10 200 mg capsule [Concomitant]
  8. ibuprofen (MOTRIN) 200 mg tablet [Concomitant]
  9. insulin glargine (Lantus Solostar U-100 Insulin) 100 unit/mL (3 mL) so [Concomitant]
  10. insulin lispro (HumaLOG KwikPen Insulin) 100 unit/mL flexpen [Concomitant]
  11. insulin NPH (NovoLIN N NPH U-100 Insulin) 100 unit/mL injection [Concomitant]
  12. metFORmin (Glucophage) 1,000 mg tablet [Concomitant]
  13. omeprazole (PriLOSEC) 20 mg capsule [Concomitant]
  14. pravastatin (PRAVACHOL) 10 mg tablet [Concomitant]

REACTIONS (3)
  - Diabetic ketoacidosis [None]
  - Dyspnoea [None]
  - Hyperglycaemia [None]

NARRATIVE: CASE EVENT DATE: 20220207
